FAERS Safety Report 13510366 (Version 1)
Quarter: 2017Q2

REPORT INFORMATION
  Report Type: Spontaneous
  Country: FR (occurrence: FR)
  Receive Date: 20170503
  Receipt Date: 20170503
  Transmission Date: 20170830
  Serious: Yes (Other)
  Sender: FDA-Public Use
  Company Number: FR-ASTRAZENECA-2017SE43931

PATIENT
  Sex: Female

DRUGS (2)
  1. PALBOCICLIB [Suspect]
     Active Substance: PALBOCICLIB
     Route: 048
  2. FASLODEX [Suspect]
     Active Substance: FULVESTRANT
     Route: 030

REACTIONS (4)
  - Epistaxis [Unknown]
  - Libido decreased [Unknown]
  - Pain in extremity [Unknown]
  - Vertigo [Unknown]
